FAERS Safety Report 25499958 (Version 1)
Quarter: 2025Q3

REPORT INFORMATION
  Report Type: Spontaneous
  Country: EU (occurrence: EU)
  Receive Date: 20250701
  Receipt Date: 20250701
  Transmission Date: 20251021
  Serious: Yes (Hospitalization)
  Sender: BAYER HEALTHCARE PHARMACEUTICALS INC.
  Company Number: None

PATIENT
  Age: 76 Year
  Sex: Male

DRUGS (1)
  1. ULTRAVIST [Suspect]
     Active Substance: IOPROMIDE
     Indication: Lung neoplasm malignant
     Route: 042
     Dates: start: 20250613, end: 20250613

REACTIONS (1)
  - Hypotensive crisis [Recovered/Resolved]

NARRATIVE: CASE EVENT DATE: 20250613
